FAERS Safety Report 4860751-1 (Version None)
Quarter: 2005Q4

REPORT INFORMATION
  Report Type: 
  Country: None (occurrence: None)
  Receive Date: 20051216
  Receipt Date: 20051216
  Transmission Date: 20060501
  Serious: No
  Sender: FDA-Public Use
  Company Number: None

PATIENT
  Age: 44 Year
  Sex: Female

DRUGS (1)
  1. DEPAKOTE [Suspect]

REACTIONS (4)
  - CONFUSIONAL STATE [None]
  - COORDINATION ABNORMAL [None]
  - HYPERAMMONAEMIA [None]
  - INCOHERENT [None]
